FAERS Safety Report 7521754-1 (Version None)
Quarter: 2011Q2

REPORT INFORMATION
  Report Type: 
  Country: None (occurrence: None)
  Receive Date: 20110603
  Receipt Date: 20110526
  Transmission Date: 20111010
  Serious: Yes (Other)
  Sender: FDA-Public Use
  Company Number: US-ABBOTT-11P-163-0728870-00

PATIENT
  Age: 42 Year
  Sex: Female
  Weight: 50.394 kg

DRUGS (2)
  1. PENTASA [Concomitant]
     Indication: CROHN'S DISEASE
     Dosage: 4000MG DAILY
  2. HUMIRA [Suspect]
     Indication: CROHN'S DISEASE
     Route: 058
     Dates: start: 20100901

REACTIONS (3)
  - OVARIAN CANCER [None]
  - VAGINAL HAEMORRHAGE [None]
  - UTERINE CANCER [None]
